FAERS Safety Report 25620790 (Version 1)
Quarter: 2025Q3

REPORT INFORMATION
  Report Type: Spontaneous
  Country: GB (occurrence: GB)
  Receive Date: 20250730
  Receipt Date: 20250730
  Transmission Date: 20251020
  Serious: Yes (Hospitalization, Other)
  Sender: CELLTRION
  Company Number: GB-CELLTRION INC.-2025GB025390

PATIENT

DRUGS (1)
  1. INFLIXIMAB [Suspect]
     Active Substance: INFLIXIMAB
     Indication: Colitis ulcerative
     Dosage: 120 MG EVERY 2 WEEKS (2 X REMSIMA 120MG/1ML SOLUTION FOR INJECTION PRE-FILLED PENS/INJECT ONE PRE-FI
     Route: 058
     Dates: start: 202501

REACTIONS (2)
  - Surgery [Unknown]
  - Drug ineffective [Unknown]
